FAERS Safety Report 10088013 (Version 1)
Quarter: 2014Q2

REPORT INFORMATION
  Report Type: Spontaneous
  Country: NL (occurrence: NL)
  Receive Date: 20140420
  Receipt Date: 20140420
  Transmission Date: 20141212
  Serious: Yes (Hospitalization)
  Sender: FDA-Public Use
  Company Number: PHHY2014NL046842

PATIENT
  Sex: Female
  Weight: 65 kg

DRUGS (3)
  1. VALSARTAN + HCT [Suspect]
     Indication: HYPERTENSION
     Dosage: 1 DF, (VALS 80 MG, HYDR 12.5 MG), BID
     Dates: start: 20100101, end: 20140408
  2. DESMOPRESSIN [Interacting]
     Indication: NOCTURIA
     Dosage: 120 UG, BID
     Dates: start: 20140330, end: 20140408
  3. FUROSEMIDE [Interacting]
     Indication: HYPERTENSION
     Dosage: 40 MG, BID
     Dates: start: 20140327

REACTIONS (2)
  - Hyponatraemia [Recovering/Resolving]
  - Drug interaction [Recovering/Resolving]
